FAERS Safety Report 4343296-7 (Version None)
Quarter: 2004Q1

REPORT INFORMATION
  Report Type: 
  Country: None (occurrence: None)
  Receive Date: 20040325
  Receipt Date: 20040119
  Transmission Date: 20041129
  Serious: No
  Sender: FDA-Public Use
  Company Number: USA040156942

PATIENT
  Age: 77 Year
  Sex: Female

DRUGS (3)
  1. FORTEO [Suspect]
     Indication: OSTEOPOROSIS
     Dosage: 20 UG/DAY
     Dates: start: 20030901, end: 20040118
  2. SYNTHROID [Concomitant]
  3. NEXIUM [Concomitant]

REACTIONS (7)
  - BACK PAIN [None]
  - DIFFICULTY IN WALKING [None]
  - MUSCLE CRAMP [None]
  - MYALGIA [None]
  - NAUSEA [None]
  - PAIN [None]
  - WALKING AID USER [None]
